FAERS Safety Report 5767585-4 (Version None)
Quarter: 2008Q2

REPORT INFORMATION
  Report Type: 
  Country: None (occurrence: None)
  Receive Date: 20080611
  Receipt Date: 20080611
  Transmission Date: 20081010
  Serious: Yes (Life-Threatening, Hospitalization)
  Sender: FDA-Public Use
  Company Number: None

PATIENT
  Sex: Male
  Weight: 95 kg

DRUGS (2)
  1. ALTEPLASE  5MG/5ML  GENETECH, INC. [Suspect]
     Indication: DEEP VEIN THROMBOSIS
     Dosage: 12.5ML/HR IV DRIP
     Route: 041
     Dates: start: 20080604, end: 20080606
  2. HEPARIN [Concomitant]

REACTIONS (3)
  - DEEP VEIN THROMBOSIS [None]
  - OEDEMA PERIPHERAL [None]
  - PAIN IN EXTREMITY [None]
